FAERS Safety Report 8022034-0 (Version None)
Quarter: 2012Q1

REPORT INFORMATION
  Report Type: 
  Country: None (occurrence: None)
  Receive Date: 20120104
  Receipt Date: 20111227
  Transmission Date: 20120608
  Serious: Yes (Hospitalization)
  Sender: FDA-Public Use
  Company Number: US-BAYER-2011-080177

PATIENT
  Age: 30 Year
  Sex: Female
  Weight: 68.027 kg

DRUGS (4)
  1. VICODIN [Concomitant]
     Dosage: UNK UNK, PRN
     Route: 048
  2. YAZ [Suspect]
     Indication: OVARIAN CYST
     Dosage: UNK
     Route: 048
     Dates: start: 20080801, end: 20090901
  3. CIPROFLOXACIN [Concomitant]
     Route: 048
  4. IBUPROFEN [Concomitant]
     Dosage: UNK UNK, PRN
     Route: 048

REACTIONS (7)
  - PULMONARY EMBOLISM [None]
  - DEEP VEIN THROMBOSIS [None]
  - CHEST PAIN [None]
  - PAIN [None]
  - EMOTIONAL DISTRESS [None]
  - ANXIETY [None]
  - DYSPNOEA [None]
